FAERS Safety Report 19788177 (Version 2)
Quarter: 2021Q4

REPORT INFORMATION
  Report Type: Report from Study
  Country: None (occurrence: US)
  Receive Date: 20210903
  Receipt Date: 20211025
  Transmission Date: 20220303
  Serious: Yes (Other)
  Sender: FDA-Public Use
  Company Number: US-VIFOR (INTERNATIONAL) INC.-VIT-2021-07166

PATIENT
  Age: 56 Year
  Sex: Male

DRUGS (3)
  1. VELTASSA [Suspect]
     Active Substance: PATIROMER
     Indication: End stage renal disease
  2. VELTASSA [Suspect]
     Active Substance: PATIROMER
  3. IRBESARTAN [Concomitant]
     Active Substance: IRBESARTAN

REACTIONS (4)
  - Acute kidney injury [Recovered/Resolved]
  - Hypokalaemia [Recovered/Resolved]
  - Hypercalcaemia [Recovered/Resolved]
  - Metabolic acidosis [Recovered/Resolved]
